FAERS Safety Report 5753726-1 (Version None)
Quarter: 2008Q2

REPORT INFORMATION
  Report Type: 
  Country: None (occurrence: None)
  Receive Date: 20080530
  Receipt Date: 20080521
  Transmission Date: 20081010
  Serious: Yes (Hospitalization)
  Sender: FDA-Public Use
  Company Number: CA-JNJFOC-20080504937

PATIENT
  Sex: Female

DRUGS (6)
  1. REMICADE [Suspect]
     Dosage: 10 TH INFUSION
     Route: 042
  2. REMICADE [Suspect]
     Dosage: 8 INFUSIONS ON UNSPECIFIED DATES
     Route: 042
  3. REMICADE [Suspect]
     Indication: CROHN'S DISEASE
     Dosage: 1ST INFUSION
     Route: 042
  4. MARVELON [Concomitant]
  5. PURINETHOL [Concomitant]
  6. APO-PAROXETINE [Concomitant]

REACTIONS (2)
  - GASTRIC ULCER [None]
  - PNEUMONIA [None]
